FAERS Safety Report 25320508 (Version 1)
Quarter: 2025Q2

REPORT INFORMATION
  Report Type: Report from Study
  Country: US (occurrence: US)
  Receive Date: 20250515
  Receipt Date: 20250515
  Transmission Date: 20250716
  Serious: Yes (Other)
  Sender: EISAI
  Company Number: US-Eisai-EC-2025-189095

PATIENT
  Age: 63 Year
  Sex: Male
  Weight: 114 kg

DRUGS (17)
  1. LENVIMA [Suspect]
     Active Substance: LENVATINIB
     Indication: Renal cell carcinoma
     Dates: start: 20230628, end: 202309
  2. LENVIMA [Suspect]
     Active Substance: LENVATINIB
     Dosage: LOWERED DOSAGE TO 16MG BUT NOT STARTED YET
     Dates: start: 202309, end: 2023
  3. LENVIMA [Suspect]
     Active Substance: LENVATINIB
     Dates: start: 20250508
  4. KEYTRUDA [Concomitant]
     Active Substance: PEMBROLIZUMAB
     Indication: Product used for unknown indication
  5. KEYTRUDA [Concomitant]
     Active Substance: PEMBROLIZUMAB
  6. APRISO [Concomitant]
     Active Substance: MESALAMINE
  7. HYDROCHLOROTHIAZIDE [Concomitant]
     Active Substance: HYDROCHLOROTHIAZIDE
  8. LOSARTAN [Concomitant]
     Active Substance: LOSARTAN
  9. LUNESTA [Concomitant]
     Active Substance: ESZOPICLONE
  10. MIRALAX [Concomitant]
     Active Substance: POLYETHYLENE GLYCOL 3350
  11. ELIQUIS [Concomitant]
     Active Substance: APIXABAN
  12. AMLODIPINE BESYLATE [Concomitant]
     Active Substance: AMLODIPINE BESYLATE
  13. GAS RELIEF [Concomitant]
     Active Substance: DIMETHICONE
  14. ACETAMINOPHEN\HYDROCODONE [Concomitant]
     Active Substance: ACETAMINOPHEN\HYDROCODONE
  15. SENNA-S [Concomitant]
     Active Substance: DOCUSATE SODIUM\SENNOSIDES
  16. METFORMIN [Concomitant]
     Active Substance: METFORMIN HYDROCHLORIDE
  17. SEMGLEE [Concomitant]

REACTIONS (1)
  - Adrenal insufficiency [Not Recovered/Not Resolved]
